FAERS Safety Report 21792051 (Version 1)
Quarter: 2022Q4

REPORT INFORMATION
  Report Type: Spontaneous
  Country: FI (occurrence: FI)
  Receive Date: 20221229
  Receipt Date: 20221229
  Transmission Date: 20230113
  Serious: Yes (Hospitalization)
  Sender: FDA-Public Use
  Company Number: None

PATIENT
  Age: 79 Year
  Sex: Male

DRUGS (1)
  1. ELIQUIS [Suspect]
     Active Substance: APIXABAN
     Indication: Pulmonary embolism
     Dosage: 10,MG,DAILY
     Route: 048
     Dates: start: 20220528, end: 20220905

REACTIONS (1)
  - Nocturnal dyspnoea [Recovered/Resolved]

NARRATIVE: CASE EVENT DATE: 20220601
